FAERS Safety Report 9423694 (Version 1)
Quarter: 2013Q3

REPORT INFORMATION
  Report Type: Spontaneous
  Country: DE (occurrence: DE)
  Receive Date: 20130727
  Receipt Date: 20130727
  Transmission Date: 20140515
  Serious: Yes (Hospitalization)
  Sender: FDA-Public Use
  Company Number: GXKR2013DE002492

PATIENT
  Sex: Male

DRUGS (1)
  1. LOPEDIUM [Suspect]
     Indication: DIARRHOEA
     Dosage: UNK UKN, UNK
     Route: 048

REACTIONS (7)
  - Swelling face [Unknown]
  - Oedema peripheral [Unknown]
  - Genital swelling [Unknown]
  - Coordination abnormal [Unknown]
  - Daydreaming [Unknown]
  - Dysphagia [Unknown]
  - Food interaction [Unknown]
